FAERS Safety Report 7473318-6 (Version None)
Quarter: 2011Q2

REPORT INFORMATION
  Report Type: 
  Country: None (occurrence: None)
  Receive Date: 20110511
  Receipt Date: 20110427
  Transmission Date: 20111010
  Serious: Yes (Other)
  Sender: FDA-Public Use
  Company Number: US-CELGENEUS-163-21880-11022928

PATIENT
  Age: 51 Year
  Sex: Female

DRUGS (7)
  1. TRAMADOL HCL [Concomitant]
     Dosage: 50 MILLIGRAM
     Route: 048
  2. SYNTHROID [Concomitant]
     Dosage: 100 MICROGRAM
     Route: 048
  3. REVLIMID [Suspect]
     Route: 048
     Dates: start: 20110407
  4. LORTAB [Concomitant]
     Indication: PAIN
     Dosage: 7.5/500MG
     Route: 065
  5. EFFEXOR XR [Concomitant]
     Dosage: 150 MILLIGRAM
     Route: 048
  6. RITUXAN [Suspect]
     Indication: LYMPHOMA
     Route: 065
     Dates: start: 20110407
  7. REVLIMID [Suspect]
     Indication: LYMPHOMA
     Route: 048
     Dates: end: 20110317

REACTIONS (1)
  - BREAST HYPERPLASIA [None]
